FAERS Safety Report 7464973-5 (Version None)
Quarter: 2011Q2

REPORT INFORMATION
  Report Type: 
  Country: None (occurrence: None)
  Receive Date: 20110509
  Receipt Date: 20110428
  Transmission Date: 20111010
  Serious: Yes (Hospitalization)
  Sender: FDA-Public Use
  Company Number: US-JNJFOC-20110500777

PATIENT
  Sex: Female
  Weight: 54.43 kg

DRUGS (12)
  1. FENTANYL-100 [Suspect]
     Indication: SYSTEMIC LUPUS ERYTHEMATOSUS
     Route: 062
  2. ELAVIL [Concomitant]
     Indication: MUSCLE RELAXANT THERAPY
     Route: 048
  3. ZETIA [Concomitant]
     Indication: BLOOD CHOLESTEROL
     Route: 048
  4. ZONEGRAN [Concomitant]
     Indication: CONVULSION
     Route: 048
  5. VASOTEC [Concomitant]
     Indication: BLOOD PRESSURE
     Route: 048
  6. FENTANYL [Suspect]
     Indication: SYSTEMIC LUPUS ERYTHEMATOSUS
     Route: 062
  7. PROTONIX [Concomitant]
     Indication: GASTRIC DISORDER
     Route: 048
  8. LIMBREL [Concomitant]
     Indication: PRODUCT USED FOR UNKNOWN INDICATION
     Route: 048
  9. OXYCODONE [Concomitant]
     Indication: BREAKTHROUGH PAIN
     Dosage: 10MG/325/TABLET/10MG/325MG
     Route: 048
  10. PROCARDIA [Concomitant]
     Indication: VASCULITIS
     Route: 048
  11. ZOFRAN [Concomitant]
     Indication: NAUSEA
     Route: 048
  12. AMRIX [Concomitant]
     Indication: PRODUCT USED FOR UNKNOWN INDICATION
     Route: 048

REACTIONS (4)
  - GASTROINTESTINAL VIRAL INFECTION [None]
  - SKIN EXFOLIATION [None]
  - APPLICATION SITE ERYTHEMA [None]
  - DECREASED IMMUNE RESPONSIVENESS [None]
